FAERS Safety Report 15866787 (Version 2)
Quarter: 2019Q1

REPORT INFORMATION
  Report Type: Spontaneous
  Country: US (occurrence: US)
  Receive Date: 20190125
  Receipt Date: 20190307
  Transmission Date: 20190417
  Serious: Yes (Other)
  Sender: FDA-Public Use
  Company Number: US-ELI_LILLY_AND_COMPANY-US201901007626

PATIENT
  Age: 18 Year
  Sex: Female

DRUGS (3)
  1. EMGALITY [Suspect]
     Active Substance: GALCANEZUMAB-GNLM
     Indication: MIGRAINE
     Dosage: 240 MG, OTHER
     Route: 058
     Dates: start: 20190109, end: 20190109
  2. PAMELOR [Concomitant]
     Active Substance: NORTRIPTYLINE HYDROCHLORIDE
     Indication: MIGRAINE PROPHYLAXIS
     Dosage: UNK UNK, DAILY
     Route: 065
     Dates: start: 201807
  3. DEPAKOTE [Concomitant]
     Active Substance: DIVALPROEX SODIUM
     Indication: MIGRAINE PROPHYLAXIS
     Dosage: UNK UNK, DAILY
     Route: 065
     Dates: start: 201807

REACTIONS (8)
  - Eye swelling [Recovered/Resolved]
  - Injection site mass [Recovering/Resolving]
  - Eye swelling [Recovered/Resolved]
  - Lip swelling [Recovered/Resolved]
  - Anaphylactic reaction [Recovering/Resolving]
  - Lip swelling [Recovered/Resolved]
  - Pain [Recovered/Resolved]
  - Chest pain [Recovered/Resolved]

NARRATIVE: CASE EVENT DATE: 20190110
